FAERS Safety Report 6935245-X (Version None)
Quarter: 2010Q3

REPORT INFORMATION
  Report Type: 
  Country: None (occurrence: None)
  Receive Date: 20100822
  Receipt Date: 20100607
  Transmission Date: 20110219
  Serious: No
  Sender: FDA-Public Use
  Company Number: US-ALLERGAN-1007390US

PATIENT
  Age: 30 Year
  Sex: Male

DRUGS (3)
  1. ZYMAR [Suspect]
     Indication: TRANSPLANT
     Dosage: UNK
     Dates: start: 20090801
  2. PRED FORTE [Suspect]
     Indication: TRANSPLANT
  3. COMBIGAN [Suspect]
     Indication: TRANSPLANT

REACTIONS (1)
  - SKIN HYPOPIGMENTATION [None]
